FAERS Safety Report 5090758-3 (Version None)
Quarter: 2006Q3

REPORT INFORMATION
  Report Type: 
  Country: None (occurrence: None)
  Receive Date: 20060823
  Receipt Date: 20060810
  Transmission Date: 20061208
  Serious: Yes (Hospitalization)
  Sender: FDA-Public Use
  Company Number: FR200608002283

PATIENT
  Age: 30 Year
  Sex: Male

DRUGS (3)
  1. ZYPREXA [Suspect]
     Indication: SCHIZOPHRENIA
     Dosage: ORAL
     Route: 048
     Dates: start: 20050201
  2. SINGULAIR [Concomitant]
  3. SEREVENT [Concomitant]

REACTIONS (7)
  - ASTHMATIC CRISIS [None]
  - CONDITION AGGRAVATED [None]
  - HYPERGLYCAEMIA [None]
  - HYPERLACTACIDAEMIA [None]
  - KETONURIA [None]
  - LACTIC ACIDOSIS [None]
  - WEIGHT INCREASED [None]
